FAERS Safety Report 11292130 (Version 3)
Quarter: 2015Q4

REPORT INFORMATION
  Report Type: Report from Study
  Country: CA (occurrence: CA)
  Receive Date: 20150722
  Receipt Date: 20151105
  Transmission Date: 20160304
  Serious: Yes (Death, Hospitalization, Other)
  Sender: FDA-Public Use
  Company Number: CA-TOLMAR, INC.-2015CA006346

PATIENT

DRUGS (1)
  1. ELIGARD [Suspect]
     Active Substance: LEUPROLIDE ACETATE
     Indication: PROSTATE CANCER
     Dosage: 30 MG, 4 MONTHS
     Route: 065
     Dates: start: 20141205, end: 20150714

REACTIONS (7)
  - Rectal haemorrhage [Unknown]
  - Death [Fatal]
  - Diarrhoea [Unknown]
  - Malaise [Unknown]
  - Pneumonia [Unknown]
  - Adverse event [Unknown]
  - Asthenia [Unknown]

NARRATIVE: CASE EVENT DATE: 201506
